FAERS Safety Report 13718441 (Version 1)
Quarter: 2017Q3

REPORT INFORMATION
  Report Type: Spontaneous
  Country: DE (occurrence: DE)
  Receive Date: 20170705
  Receipt Date: 20170705
  Transmission Date: 20171127
  Serious: Yes (Hospitalization, Other)
  Sender: FDA-Public Use
  Company Number: PHHY2017DE090635

PATIENT
  Age: 27 Year
  Sex: Female

DRUGS (4)
  1. CITALOPRAM [Concomitant]
     Active Substance: CITALOPRAM HYDROBROMIDE
     Indication: PRODUCT USED FOR UNKNOWN INDICATION
     Dosage: 1 DF, QD (1 0 0)
     Route: 065
  2. CANDESARTAN. [Concomitant]
     Active Substance: CANDESARTAN
     Indication: PRODUCT USED FOR UNKNOWN INDICATION
     Dosage: 1 DF, QD (1 0 0)
     Route: 065
  3. GILENYA [Suspect]
     Active Substance: FINGOLIMOD HYDROCHLORIDE
     Indication: MULTIPLE SCLEROSIS
     Dosage: 0.5 MG, QD
     Route: 065
     Dates: start: 201704
  4. CORTISONE [Concomitant]
     Active Substance: CORTISONE\HYDROCORTISONE
     Indication: MULTIPLE SCLEROSIS
     Route: 037

REACTIONS (16)
  - Vitamin B6 increased [Unknown]
  - Central nervous system inflammation [Unknown]
  - Vitamin B12 increased [Unknown]
  - Prothrombin time shortened [Unknown]
  - Nausea [Unknown]
  - Headache [Recovered/Resolved]
  - Ear discomfort [Unknown]
  - Migraine with aura [Unknown]
  - Bacterial test positive [Unknown]
  - pH urine increased [Unknown]
  - Tension headache [Unknown]
  - Post lumbar puncture syndrome [Recovered/Resolved]
  - Activated partial thromboplastin time shortened [Unknown]
  - Alanine aminotransferase increased [Unknown]
  - Headache [Recovered/Resolved]
  - Paraesthesia [Unknown]

NARRATIVE: CASE EVENT DATE: 20170614
